FAERS Safety Report 23183263 (Version 2)
Quarter: 2023Q4

REPORT INFORMATION
  Report Type: Report from Study
  Country: JP (occurrence: JP)
  Receive Date: 20231114
  Receipt Date: 20231121
  Transmission Date: 20240110
  Serious: Yes (Hospitalization)
  Sender: FDA-Public Use
  Company Number: JP-INCYTE CORPORATION-2023IN010624

PATIENT

DRUGS (19)
  1. RETIFANLIMAB [Suspect]
     Active Substance: RETIFANLIMAB
     Indication: Anal cancer stage 0
     Dosage: 500 MILLIGRAM, Q4W
     Route: 042
     Dates: start: 20230425, end: 20230523
  2. RETIFANLIMAB [Suspect]
     Active Substance: RETIFANLIMAB
     Dosage: 500 MILLIGRAM, Q4W
     Route: 042
     Dates: start: 20230620, end: 20230718
  3. RETIFANLIMAB [Suspect]
     Active Substance: RETIFANLIMAB
     Dosage: 500 MILLIGRAM, Q4W
     Route: 042
     Dates: start: 20230815
  4. CARBOPLATIN [Suspect]
     Active Substance: CARBOPLATIN
     Indication: Anal cancer stage 0
     Dosage: AUC 5, Q4W
     Route: 042
     Dates: start: 20230425, end: 20230912
  5. LANSOPRAZOLE [Concomitant]
     Active Substance: LANSOPRAZOLE
     Indication: Prophylaxis
     Dosage: 15 MILLIGRAM, QD
     Route: 048
     Dates: start: 20230719
  6. UREA [Concomitant]
     Active Substance: UREA
     Indication: Prophylaxis against dehydration
     Dosage: 1.0 OINTMENT, BID
     Route: 061
     Dates: start: 20230829
  7. GLYCOSAMINOGLYCANS [Concomitant]
     Active Substance: GLYCOSAMINOGLYCANS
     Indication: Prophylaxis against dehydration
     Dosage: 1.0 OINTMENT, BID
     Route: 061
     Dates: start: 20230912
  8. PALONOSETRON HYDROCHLORIDE [Concomitant]
     Active Substance: PALONOSETRON HYDROCHLORIDE
     Indication: Chemotherapy side effect prophylaxis
     Dosage: 0.75 MILLIGRAM, SINGLE
     Route: 042
     Dates: start: 20230912, end: 20230912
  9. FAMOTIDINE [Concomitant]
     Active Substance: FAMOTIDINE
     Indication: Chemotherapy side effect prophylaxis
     Dosage: 20 MILLIGRAM, SINGLE
     Route: 042
     Dates: start: 20230912, end: 20230912
  10. FAMOTIDINE [Concomitant]
     Active Substance: FAMOTIDINE
     Dosage: 20 MILLIGRAM, SINGLE
     Route: 042
     Dates: start: 20230919, end: 20230919
  11. FAMOTIDINE [Concomitant]
     Active Substance: FAMOTIDINE
     Dosage: 20 MILLIGRAM, SINGLE
     Route: 042
     Dates: start: 20230926, end: 20230926
  12. CHLORPHENIRAMINE MALEATE [Concomitant]
     Active Substance: CHLORPHENIRAMINE MALEATE
     Indication: Chemotherapy side effect prophylaxis
     Dosage: 5 MILLIGRAM, SINGLE
     Route: 042
     Dates: start: 20230912, end: 20230912
  13. CHLORPHENIRAMINE MALEATE [Concomitant]
     Active Substance: CHLORPHENIRAMINE MALEATE
     Dosage: 5 MILLIGRAM, SINGLE
     Route: 042
     Dates: start: 20230919, end: 20230919
  14. CHLORPHENIRAMINE MALEATE [Concomitant]
     Active Substance: CHLORPHENIRAMINE MALEATE
     Dosage: 5 MILLIGRAM, SINGLE
     Route: 042
     Dates: start: 20230926, end: 20230926
  15. DEXAMETHASONE SODIUM PHOSPHATE [Concomitant]
     Active Substance: DEXAMETHASONE SODIUM PHOSPHATE
     Indication: Chemotherapy side effect prophylaxis
     Dosage: 9.9 MILLIGRAM, SINGLE
     Route: 042
     Dates: start: 20230912, end: 20230912
  16. DEXAMETHASONE SODIUM PHOSPHATE [Concomitant]
     Active Substance: DEXAMETHASONE SODIUM PHOSPHATE
     Dosage: 9.9 MILLIGRAM, SINGLE
     Route: 042
     Dates: start: 20230919, end: 20230919
  17. DEXAMETHASONE SODIUM PHOSPHATE [Concomitant]
     Active Substance: DEXAMETHASONE SODIUM PHOSPHATE
     Dosage: 9.9 MILLIGRAM, SINGLE
     Route: 042
     Dates: start: 20230926, end: 20230926
  18. SULFAMETHOXAZOLE\TRIMETHOPRIM [Concomitant]
     Active Substance: SULFAMETHOXAZOLE\TRIMETHOPRIM
     Indication: Prophylaxis
     Dosage: 1 TABLET QD
     Route: 048
     Dates: start: 20231010
  19. MAGNESIUM OXIDE [Concomitant]
     Active Substance: MAGNESIUM OXIDE
     Indication: Product used for unknown indication
     Dosage: 330 MILLIGRAM, TID
     Route: 048
     Dates: start: 20230503

REACTIONS (1)
  - Rash maculo-papular [Recovered/Resolved]

NARRATIVE: CASE EVENT DATE: 20231023
